FAERS Safety Report 5708379-5 (Version None)
Quarter: 2008Q2

REPORT INFORMATION
  Report Type: 
  Country: None (occurrence: None)
  Receive Date: 20080417
  Receipt Date: 20080415
  Transmission Date: 20081010
  Serious: Yes (Death)
  Sender: FDA-Public Use
  Company Number: MW-GILEAD-2008-0016099

PATIENT
  Age: 24 Year
  Sex: Female
  Weight: 33 kg

DRUGS (4)
  1. TRUVADA [Suspect]
     Indication: HIV INFECTION
     Route: 048
     Dates: start: 20071116, end: 20080219
  2. KALETRA [Suspect]
     Indication: HIV INFECTION
     Route: 048
     Dates: start: 20071116, end: 20080219
  3. COTRIMOXAZOLE [Concomitant]
  4. FEFOL [Concomitant]

REACTIONS (1)
  - PULMONARY TUBERCULOSIS [None]
